FAERS Safety Report 18378452 (Version 1)
Quarter: 2020Q4

REPORT INFORMATION
  Report Type: Report from Study
  Country: CA (occurrence: CA)
  Receive Date: 20201013
  Receipt Date: 20201013
  Transmission Date: 20210114
  Serious: Yes (Hospitalization)
  Sender: FDA-Public Use
  Company Number: CA-JNJFOC-20201009052

PATIENT
  Age: 66 Year
  Sex: Male

DRUGS (2)
  1. TREMFYA [Suspect]
     Active Substance: GUSELKUMAB
  2. TREMFYA [Suspect]
     Active Substance: GUSELKUMAB
     Indication: PSORIASIS
     Route: 058
     Dates: start: 20180911, end: 20200819

REACTIONS (5)
  - Dyspnoea [Unknown]
  - Pyrexia [Recovered/Resolved]
  - Pain [Unknown]
  - Hyperhidrosis [Unknown]
  - Feeling cold [Unknown]

NARRATIVE: CASE EVENT DATE: 20201001
